FAERS Safety Report 23733593 (Version 2)
Quarter: 2024Q2

REPORT INFORMATION
  Report Type: Spontaneous
  Country: JP (occurrence: JP)
  Receive Date: 20240411
  Receipt Date: 20240613
  Transmission Date: 20240716
  Serious: Yes (Hospitalization)
  Sender: FDA-Public Use
  Company Number: JP-002147023-NVSJ2024JP004252

PATIENT
  Age: 84 Year
  Sex: Female

DRUGS (1)
  1. GLYCOPYRRONIUM\INDACATEROL [Suspect]
     Active Substance: GLYCOPYRRONIUM\INDACATEROL
     Indication: Chronic obstructive pulmonary disease
     Dosage: 1DF:GLYCOPYRRONIUM BROMIDE 50UG,INDACATEROL MALEATE110UG,UNKNOWN
     Route: 055

REACTIONS (2)
  - Immobilisation syndrome [Unknown]
  - Diabetes mellitus inadequate control [Unknown]
